FAERS Safety Report 19906431 (Version 2)
Quarter: 2021Q4

REPORT INFORMATION
  Report Type: Spontaneous
  Country: DE (occurrence: DE)
  Receive Date: 20211001
  Receipt Date: 20211119
  Transmission Date: 20220303
  Serious: Yes (Other)
  Sender: FDA-Public Use
  Company Number: None

PATIENT
  Age: 67 Year
  Sex: Female
  Weight: 47 kg

DRUGS (4)
  1. PRASUGREL [Suspect]
     Active Substance: PRASUGREL
     Indication: Product used for unknown indication
     Dosage: ERST 10 MG, NACH 1 WOCHE REDUKTION AUF 5 MG
     Route: 048
     Dates: start: 20210331
  2. PRASUGREL [Suspect]
     Active Substance: PRASUGREL
     Dosage: 5 MILLIGRAM
     Route: 048
     Dates: start: 20210405, end: 20210601
  3. ASPIRIN [Concomitant]
     Active Substance: ASPIRIN
     Indication: Myocardial infarction
     Dosage: 100 MILLIGRAM
  4. RAMIPRIL [Concomitant]
     Active Substance: RAMIPRIL
     Indication: Myocardial infarction
     Dosage: 0.5 DOSAGE FORM
     Dates: start: 2021

REACTIONS (8)
  - Eye haemorrhage [Recovered/Resolved]
  - Haematoma [Recovered/Resolved]
  - Fatigue [Unknown]
  - Diarrhoea [Unknown]
  - General physical health deterioration [Unknown]
  - Depressed mood [Unknown]
  - Dyspnoea [Unknown]
  - Asthenia [Unknown]

NARRATIVE: CASE EVENT DATE: 20210414
